FAERS Safety Report 8187068-4 (Version None)
Quarter: 2012Q1

REPORT INFORMATION
  Report Type: 
  Country: None (occurrence: None)
  Receive Date: 20120306
  Receipt Date: 20120301
  Transmission Date: 20120608
  Serious: No
  Sender: FDA-Public Use
  Company Number: US-BAYER-2012-021420

PATIENT

DRUGS (3)
  1. IBUPROFEN (ADVIL) [Concomitant]
     Dosage: 3 DF, UNK
  2. PAMPRIN TAB [Concomitant]
     Dosage: 2 DF, UNK
  3. ALEVE (CAPLET) [Suspect]
     Dosage: 1 DF, UNK

REACTIONS (1)
  - PAIN [None]
